FAERS Safety Report 20901233 (Version 1)
Quarter: 2022Q2

REPORT INFORMATION
  Report Type: Spontaneous
  Country: CA (occurrence: None)
  Receive Date: 20220601
  Receipt Date: 20220601
  Transmission Date: 20220721
  Serious: Yes (Death, Hospitalization)
  Sender: FDA-Public Use
  Company Number: CA-ROCHE-3102978

PATIENT
  Age: 41 Year
  Sex: Female

DRUGS (6)
  1. BEVACIZUMAB [Suspect]
     Active Substance: BEVACIZUMAB
     Indication: Product used for unknown indication
     Route: 042
  2. LOMUSTINE [Suspect]
     Active Substance: LOMUSTINE
     Indication: Product used for unknown indication
     Route: 065
  3. TEMOZOLOMIDE [Suspect]
     Active Substance: TEMOZOLOMIDE
     Indication: Glioblastoma
     Route: 065
  4. DEXAMETHASONE [Concomitant]
     Active Substance: DEXAMETHASONE
     Indication: Product used for unknown indication
     Route: 065
  5. COVID-19 VACCINE [Concomitant]
     Indication: Product used for unknown indication
  6. SEPTRA [Concomitant]
     Active Substance: SULFAMETHOXAZOLE\TRIMETHOPRIM
     Indication: Product used for unknown indication

REACTIONS (5)
  - Eastern Cooperative Oncology Group performance status worsened [Fatal]
  - Neutropenia [Fatal]
  - Diarrhoea [Fatal]
  - Thrombocytopenia [Fatal]
  - Drug ineffective [Fatal]
